FAERS Safety Report 4647888-7 (Version None)
Quarter: 2005Q2

REPORT INFORMATION
  Report Type: 
  Country: None (occurrence: None)
  Receive Date: 20050428
  Receipt Date: 20050425
  Transmission Date: 20051028
  Serious: Yes (Other)
  Sender: FDA-Public Use
  Company Number: PHBS2005JP05957

PATIENT
  Sex: Female

DRUGS (3)
  1. TEGRETOL [Suspect]
     Indication: GLOSSOPHARYNGEAL NEURALGIA
     Dosage: 100 MG, PRN
     Route: 048
     Dates: start: 19980101
  2. TEGRETOL [Suspect]
     Dosage: 25 MG, PRN
     Route: 048
  3. PLETAL [Concomitant]

REACTIONS (4)
  - CEREBRAL INFARCTION [None]
  - DYSGEUSIA [None]
  - GENERALISED ERYTHEMA [None]
  - PYREXIA [None]
